FAERS Safety Report 11221838 (Version 2)
Quarter: 2015Q3

REPORT INFORMATION
  Report Type: Spontaneous
  Country: US (occurrence: US)
  Receive Date: 20150626
  Receipt Date: 20150720
  Transmission Date: 20151125
  Serious: No
  Sender: FDA-Public Use
  Company Number: US-PFIZER INC-2015210559

PATIENT
  Age: 68 Year
  Sex: Female
  Weight: 40 kg

DRUGS (2)
  1. DILANTIN [Suspect]
     Active Substance: PHENYTOIN
     Indication: MULTIPLE SCLEROSIS
     Dosage: 100 MG, 1X/DAY
     Dates: start: 20150428
  2. DILANTIN [Suspect]
     Active Substance: PHENYTOIN
     Indication: MUSCLE INJURY
     Dosage: 100 MG, 3X/DAY
     Dates: start: 19631222

REACTIONS (3)
  - Asthenia [Not Recovered/Not Resolved]
  - Drug ineffective [Recovered/Resolved]
  - Blood glucose increased [Not Recovered/Not Resolved]

NARRATIVE: CASE EVENT DATE: 20150428
